FAERS Safety Report 23926661 (Version 1)
Quarter: 2024Q2

REPORT INFORMATION
  Report Type: Spontaneous
  Country: US (occurrence: None)
  Receive Date: 20240531
  Receipt Date: 20240531
  Transmission Date: 20240715
  Serious: Yes (unspecified)
  Sender: FDA-Public Use
  Company Number: None

PATIENT
  Age: 5 Year
  Sex: Female
  Weight: 23.9 kg

DRUGS (3)
  1. ASPARLAS [Suspect]
     Active Substance: CALASPARGASE PEGOL-MKNL
     Indication: B-cell type acute leukaemia
     Route: 042
     Dates: start: 20240502
  2. VINCRISTINE [Suspect]
     Active Substance: VINCRISTINE
  3. DEXAMETHASONE [Concomitant]
     Active Substance: DEXAMETHASONE

REACTIONS (8)
  - Hyperglycaemia [None]
  - Pancytopenia [None]
  - Hypertransaminasaemia [None]
  - Hyperbilirubinaemia [None]
  - Hypertriglyceridaemia [None]
  - Abdominal pain [None]
  - Hepatomegaly [None]
  - Splenomegaly [None]

NARRATIVE: CASE EVENT DATE: 20240529
